FAERS Safety Report 11416845 (Version 2)
Quarter: 2015Q3

REPORT INFORMATION
  Report Type: Report from Study
  Country: BR (occurrence: BR)
  Receive Date: 20150825
  Receipt Date: 20150904
  Transmission Date: 20151125
  Serious: Yes (Death)
  Sender: FDA-Public Use
  Company Number: PHHY2015BR101778

PATIENT
  Sex: Male

DRUGS (1)
  1. ONBREZ BREEZHALER [Suspect]
     Active Substance: INDACATEROL
     Indication: EMPHYSEMA
     Dosage: 1 DF, QD
     Route: 065
     Dates: start: 20150103, end: 20150605

REACTIONS (3)
  - Asthenia [Fatal]
  - Emphysema [Fatal]
  - Mobility decreased [Fatal]

NARRATIVE: CASE EVENT DATE: 20150604
